FAERS Safety Report 7456924-4 (Version None)
Quarter: 2011Q1

REPORT INFORMATION
  Report Type: 
  Country: None (occurrence: None)
  Receive Date: 20110302
  Receipt Date: 20101108
  Transmission Date: 20110831
  Serious: Yes (Other)
  Sender: FDA-Public Use
  Company Number: 009853

PATIENT
  Sex: Female

DRUGS (8)
  1. PREDNISONE TAB [Concomitant]
  2. LORTAB [Concomitant]
  3. CIMZIA [Suspect]
  4. ENTOCORT EC [Concomitant]
  5. METHOTREXATE [Concomitant]
  6. CIMZIA [Suspect]
     Indication: CROHN'S DISEASE
     Dosage: 400 MG 1X/MONTH SUBCUTANEOUS, 400 MG 1X/MONTH SUBCUTANEOUS
     Route: 058
     Dates: start: 20081029
  7. NEXIUM [Concomitant]
  8. CIPRO [Concomitant]

REACTIONS (1)
  - CROHN'S DISEASE [None]
